FAERS Safety Report 21876570 (Version 2)
Quarter: 2023Q2

REPORT INFORMATION
  Report Type: Other
  Country: DE (occurrence: DE)
  Receive Date: 20230118
  Receipt Date: 20230414
  Transmission Date: 20230722
  Serious: Yes (Other)
  Sender: FDA-Public Use
  Company Number: DE-CELLTRION INC.-2023DE000501

PATIENT

DRUGS (19)
  1. RITUXIMAB [Suspect]
     Active Substance: RITUXIMAB
     Indication: Diffuse large B-cell lymphoma
     Dosage: POLATUZUMAB WITH RITUXIMAB AND BENDAMUSTIN
     Dates: start: 20200701, end: 20201101
  2. RITUXIMAB [Suspect]
     Active Substance: RITUXIMAB
     Dosage: R-CHOP
     Dates: start: 20030901, end: 20040101
  3. RITUXIMAB [Suspect]
     Active Substance: RITUXIMAB
     Dosage: R-DHAP
     Dates: start: 20140501, end: 20140601
  4. RITUXIMAB [Suspect]
     Active Substance: RITUXIMAB
     Dosage: POLATUZUMAB WITH RITUXIMAB AND BENDAMUSTIN
     Dates: start: 20220311, end: 20220810
  5. CYCLOPHOSPHAMIDE [Suspect]
     Active Substance: CYCLOPHOSPHAMIDE
     Indication: Diffuse large B-cell lymphoma
     Dosage: R-CHOP
     Dates: start: 20030901, end: 20040101
  6. ETOPOSIDE [Suspect]
     Active Substance: ETOPOSIDE
     Indication: Diffuse large B-cell lymphoma
     Dosage: BEAM + AUTO-SCT
     Dates: start: 20140901, end: 20141001
  7. CYTARABINE [Suspect]
     Active Substance: CYTARABINE
     Indication: Diffuse large B-cell lymphoma
     Dosage: BEAM + AUTO-SCT
     Dates: start: 20140901, end: 20141001
  8. CYTARABINE [Suspect]
     Active Substance: CYTARABINE
     Dosage: UNK
     Dates: start: 20140501, end: 20140601
  9. VINCRISTINE [Suspect]
     Active Substance: VINCRISTINE
     Indication: Diffuse large B-cell lymphoma
     Dosage: UNK
     Dates: start: 20030901, end: 20040101
  10. BENDAMUSTINE [Suspect]
     Active Substance: BENDAMUSTINE
     Indication: Diffuse large B-cell lymphoma
     Dosage: POLATUZUMAB WITH RITUXIMAB AND BENDAMUSTIN
     Dates: start: 20220311, end: 20220810
  11. BENDAMUSTINE [Suspect]
     Active Substance: BENDAMUSTINE
     Dosage: POLATUZUMAB WITH RITUXIMAB AND BENDAMUSTIN
     Dates: start: 20200701, end: 20201101
  12. PREDNISONE [Suspect]
     Active Substance: PREDNISONE
     Indication: Diffuse large B-cell lymphoma
     Dosage: R-CHOP
     Dates: start: 20030901, end: 20040101
  13. DOXORUBICIN [Suspect]
     Active Substance: DOXORUBICIN
     Indication: Diffuse large B-cell lymphoma
     Dosage: R-CHOP
     Dates: start: 20030901, end: 20040101
  14. DEXAMETHASONE [Suspect]
     Active Substance: DEXAMETHASONE
     Indication: Diffuse large B-cell lymphoma
     Dosage: UNK
     Dates: start: 20140501, end: 20140601
  15. MELPHALAN [Suspect]
     Active Substance: MELPHALAN
     Indication: Diffuse large B-cell lymphoma
     Dosage: BEAM + AUTO-SCT
     Dates: start: 20140901, end: 20141001
  16. POLATUZUMAB VEDOTIN [Suspect]
     Active Substance: POLATUZUMAB VEDOTIN
     Indication: Diffuse large B-cell lymphoma
     Dosage: UNK
     Dates: start: 20200701, end: 20201101
  17. POLATUZUMAB VEDOTIN [Suspect]
     Active Substance: POLATUZUMAB VEDOTIN
     Dosage: POLATUZUMAB WITH RITUXIMAB AND BENDAMUSTIN
     Dates: start: 20220311, end: 20220810
  18. CARMUSTINE [Suspect]
     Active Substance: CARMUSTINE
     Indication: Diffuse large B-cell lymphoma
     Dosage: BEAM + AUTO-SCT
     Dates: start: 20140901, end: 20141001
  19. CISPLATIN [Suspect]
     Active Substance: CISPLATIN
     Indication: Diffuse large B-cell lymphoma
     Dosage: UNK
     Dates: start: 20140501, end: 20140601

REACTIONS (3)
  - Lymphoma [Not Recovered/Not Resolved]
  - Disease recurrence [Not Recovered/Not Resolved]
  - Product use issue [Unknown]

NARRATIVE: CASE EVENT DATE: 20220101
